FAERS Safety Report 10218200 (Version 1)
Quarter: 2014Q2

REPORT INFORMATION
  Report Type: Spontaneous
  Country: US (occurrence: US)
  Receive Date: 20140605
  Receipt Date: 20140605
  Transmission Date: 20141212
  Serious: No
  Sender: FDA-Public Use
  Company Number: US-BIOGENIDEC-2014BI048490

PATIENT
  Age: 45 Year
  Sex: Female

DRUGS (10)
  1. TECFIDERA [Suspect]
     Indication: MULTIPLE SCLEROSIS
     Route: 048
     Dates: start: 20140211
  2. ACIDOPHILUS PROBIOTIC BLEND [Concomitant]
  3. AMINOPHYLLINE [Concomitant]
  4. BACLOFEN [Concomitant]
  5. CLONAZEPAM [Concomitant]
  6. FIBER COMPLETE [Concomitant]
  7. LEVOTHYROXINE SODIUM [Concomitant]
  8. LEXAPRO [Concomitant]
  9. TIZANIDINE HCL [Concomitant]
  10. VITAMIN D3 [Concomitant]

REACTIONS (1)
  - Constipation [Unknown]
